FAERS Safety Report 24706696 (Version 1)
Quarter: 2024Q4

REPORT INFORMATION
  Report Type: Spontaneous
  Country: JP (occurrence: JP)
  Receive Date: 20241206
  Receipt Date: 20241206
  Transmission Date: 20250115
  Serious: Yes (Hospitalization, Other)
  Sender: SETON PHARMACEUTICALS
  Company Number: JP-SETONPHARMA-2024SETLIT00010

PATIENT
  Age: 11 Year
  Sex: Female

DRUGS (2)
  1. PREDNISOLONE [Suspect]
     Active Substance: PREDNISOLONE
     Indication: B-cell type acute leukaemia
  2. PREDNISOLONE [Suspect]
     Active Substance: PREDNISOLONE

REACTIONS (1)
  - Haemophagocytic lymphohistiocytosis [Recovered/Resolved]
